FAERS Safety Report 21238759 (Version 1)
Quarter: 2022Q3

REPORT INFORMATION
  Report Type: Spontaneous
  Country: CN (occurrence: CN)
  Receive Date: 20220822
  Receipt Date: 20220822
  Transmission Date: 20221026
  Serious: Yes (Other)
  Sender: FDA-Public Use
  Company Number: CN-PFIZER INC-PV202200046992

PATIENT
  Age: 29 Year
  Sex: Female
  Weight: 44 kg

DRUGS (10)
  1. CYTARABINE [Suspect]
     Active Substance: CYTARABINE
     Indication: Acute promyelocytic leukaemia
     Dosage: 0.5 G, 1X/DAY
     Route: 037
     Dates: start: 20220805, end: 20220805
  2. METHOTREXATE SODIUM [Suspect]
     Active Substance: METHOTREXATE SODIUM
     Indication: Acute promyelocytic leukaemia
     Dosage: 5 ML, 1X/DAY
     Route: 037
     Dates: start: 20220805, end: 20220805
  3. ARSENIC TRIOXIDE [Suspect]
     Active Substance: ARSENIC TRIOXIDE
     Indication: Acute promyelocytic leukaemia
     Dosage: 10 MG, 1X/DAY
     Route: 041
     Dates: start: 20220805, end: 20220808
  4. ARSENIC TRIOXIDE [Suspect]
     Active Substance: ARSENIC TRIOXIDE
     Dosage: 5 MG, 1X/DAY
     Route: 041
     Dates: start: 20220809, end: 20220815
  5. SODIUM CHLORIDE [Suspect]
     Active Substance: SODIUM CHLORIDE
     Indication: Vehicle solution use
     Dosage: 100 ML, 1X/DAY
     Route: 037
     Dates: start: 20220805, end: 20220805
  6. SODIUM CHLORIDE [Concomitant]
     Active Substance: SODIUM CHLORIDE
     Indication: Vehicle solution use
     Dosage: 10 ML, 1X/DAY
     Route: 037
     Dates: start: 20220805, end: 20220805
  7. SODIUM CHLORIDE [Concomitant]
     Active Substance: SODIUM CHLORIDE
     Dosage: 500 ML, 1X/DAY
     Route: 041
     Dates: start: 20220805, end: 20220808
  8. SODIUM CHLORIDE [Concomitant]
     Active Substance: SODIUM CHLORIDE
     Dosage: 250 ML, 1X/DAY
     Route: 041
     Dates: start: 20220809, end: 20220815
  9. MANNITOL [Concomitant]
     Active Substance: MANNITOL
     Indication: Acute promyelocytic leukaemia
     Dosage: 125 ML, 1X/DAY
     Route: 041
     Dates: start: 20220809, end: 20220815
  10. DEXTROSE [Concomitant]
     Active Substance: DEXTROSE
     Indication: Vehicle solution use
     Dosage: 125 ML, 1X/DAY
     Route: 041
     Dates: start: 20220809, end: 20220815

REACTIONS (3)
  - Neutrophil count decreased [Unknown]
  - Transaminases increased [Unknown]
  - White blood cell count decreased [Unknown]

NARRATIVE: CASE EVENT DATE: 20220815
